FAERS Safety Report 16623307 (Version 5)
Quarter: 2021Q4

REPORT INFORMATION
  Report Type: Other
  Country: AU (occurrence: AU)
  Receive Date: 20190724
  Receipt Date: 20211001
  Transmission Date: 20220303
  Serious: Yes (Hospitalization, Other)
  Sender: FDA-Public Use
  Company Number: AU-ROCHE-2360596

PATIENT
  Age: 81 Year
  Sex: Male

DRUGS (5)
  1. RITUXIMAB [Suspect]
     Active Substance: RITUXIMAB
     Indication: Hairy cell leukaemia
     Dosage: 8 DOSES
     Route: 042
     Dates: start: 2014, end: 201604
  2. VEMURAFENIB [Suspect]
     Active Substance: VEMURAFENIB
     Indication: Hairy cell leukaemia
     Dosage: DISPENSING RECORD FOR THE PATIENT VEMURAFENIB 240 MG 4 TABLETS TO BE SWALLOWED TWICE A DAY WAS RECEI
     Route: 048
     Dates: start: 201908, end: 201909
  3. OBINUTUZUMAB [Suspect]
     Active Substance: OBINUTUZUMAB
     Indication: Hairy cell leukaemia
     Dosage: LAST DOSE WAS IN /JUL/2021
     Route: 042
  4. OBINUTUZUMAB [Suspect]
     Active Substance: OBINUTUZUMAB
     Dosage: HE THEN MOVED ONTO 3 MONTHLY WITH THE NEXT DOSE GIVEN JANUARY, APRIL, JULY.
     Route: 042
     Dates: start: 20201013
  5. CLADRIBINE [Suspect]
     Active Substance: CLADRIBINE
     Indication: Hairy cell leukaemia
     Route: 065
     Dates: start: 2010

REACTIONS (8)
  - Subcutaneous abscess [Unknown]
  - Myelodysplastic syndrome [Unknown]
  - Off label use [Unknown]
  - Drug resistance [Unknown]
  - Hepatic steatosis [Unknown]
  - Fibrosis [Unknown]
  - Back pain [Unknown]
  - Pain in extremity [Unknown]

NARRATIVE: CASE EVENT DATE: 20190801
